FAERS Safety Report 4854951-4 (Version None)
Quarter: 2005Q4

REPORT INFORMATION
  Report Type: 
  Country: None (occurrence: None)
  Receive Date: 20051213
  Receipt Date: 20051130
  Transmission Date: 20060501
  Serious: Yes (Death, Life-Threatening, Hospitalization)
  Sender: FDA-Public Use
  Company Number: CFX20050028

PATIENT
  Age: 77 Year
  Sex: Female

DRUGS (3)
  1. CIPROFLOXACIN [Suspect]
     Indication: OTITIS MEDIA
     Dosage: PO
     Route: 048
     Dates: start: 20040101, end: 20040101
  2. CIPROFLOXACIN [Suspect]
     Indication: URINARY TRACT INFECTION
     Dosage: PO
     Route: 048
     Dates: start: 20040101, end: 20040101
  3. WARFARIN [Concomitant]

REACTIONS (16)
  - ASCITES [None]
  - B-LYMPHOCYTE COUNT DECREASED [None]
  - CEREBRAL HAEMORRHAGE [None]
  - DEEP VEIN THROMBOSIS [None]
  - DRUG INEFFECTIVE [None]
  - FACTOR XIII DEFICIENCY [None]
  - FACTOR XIII INHIBITION [None]
  - GASTRIC ULCER HAEMORRHAGE [None]
  - HAEMATOMA [None]
  - HAEMOGLOBIN DECREASED [None]
  - JUGULAR VEIN THROMBOSIS [None]
  - PLASMAPHERESIS [None]
  - POST PROCEDURAL HAEMORRHAGE [None]
  - SOFT TISSUE HAEMORRHAGE [None]
  - THROMBOCYTOPENIA [None]
  - URINARY TRACT INFECTION [None]
